FAERS Safety Report 21316900 (Version 1)
Quarter: 2022Q3

REPORT INFORMATION
  Report Type: Spontaneous
  Country: US (occurrence: US)
  Receive Date: 20220911
  Receipt Date: 20220911
  Transmission Date: 20221027
  Serious: No
  Sender: FDA-Public Use
  Company Number: US-SA-SAC20220818001112

PATIENT
  Age: 58 Year
  Sex: Male
  Weight: 72.4 kg

DRUGS (1)
  1. DUPIXENT [Suspect]
     Active Substance: DUPILUMAB
     Indication: Asthma
     Dosage: 300 MG, QOW
     Route: 058

REACTIONS (8)
  - Malaise [Unknown]
  - Cough [Unknown]
  - Pain [Unknown]
  - Headache [Unknown]
  - Somnambulism [Unknown]
  - Illness [Unknown]
  - Decreased activity [Unknown]
  - Asthma [Unknown]

NARRATIVE: CASE EVENT DATE: 20220812
